FAERS Safety Report 4393002-5 (Version None)
Quarter: 2004Q3

REPORT INFORMATION
  Report Type: 
  Country: None (occurrence: None)
  Receive Date: 20040702
  Receipt Date: 20040420
  Transmission Date: 20050211
  Serious: Yes (Other)
  Sender: FDA-Public Use
  Company Number: 2004UW08010

PATIENT
  Age: 73 Year
  Sex: Male
  Weight: 77.1115 kg

DRUGS (6)
  1. CRESTOR [Suspect]
     Indication: BLOOD CHOLESTEROL INCREASED
     Dosage: 10 MG PO
     Dates: start: 20040201
  2. FISH OIL [Concomitant]
  3. MULTIVITAMIN [Concomitant]
  4. FOLIC ACID [Concomitant]
  5. HEART PILLS [Concomitant]
  6. TENORMIN [Concomitant]

REACTIONS (2)
  - EPISTAXIS [None]
  - HEADACHE [None]
